FAERS Safety Report 6621977-X (Version None)
Quarter: 2010Q1

REPORT INFORMATION
  Report Type: 
  Country: None (occurrence: None)
  Receive Date: 20100303
  Receipt Date: 20100217
  Transmission Date: 20100710
  Serious: Yes (Other)
  Sender: FDA-Public Use
  Company Number: US-1180611

PATIENT
  Age: 71 Year
  Sex: Female
  Weight: 86.1834 kg

DRUGS (7)
  1. CIPRODEX [Suspect]
     Dosage: AURICULAR (OTIC)
     Route: 001
     Dates: start: 20090605, end: 20090902
  2. HALDOL [Concomitant]
  3. COGENTIN [Concomitant]
  4. CELEBREX [Concomitant]
  5. ZYRTEC [Concomitant]
  6. HEMOCYTE PLUS [Concomitant]
  7. VITAMINS [Concomitant]

REACTIONS (5)
  - DEAFNESS TRANSITORY [None]
  - EAR DISCOMFORT [None]
  - EAR PAIN [None]
  - EAR PRURITUS [None]
  - INNER EAR INFLAMMATION [None]
